FAERS Safety Report 5069762-7 (Version None)
Quarter: 2006Q3

REPORT INFORMATION
  Report Type: 
  Country: None (occurrence: None)
  Receive Date: 20060803
  Receipt Date: 20060504
  Transmission Date: 20061208
  Serious: Yes (Other)
  Sender: FDA-Public Use
  Company Number: US-GLAXOSMITHKLINE-A0604403A

PATIENT
  Age: 51 Year
  Sex: Male
  Weight: 103.2 kg

DRUGS (5)
  1. WELLBUTRIN XL [Suspect]
     Indication: DEPRESSION
     Dosage: 450MG IN THE MORNING
     Route: 048
  2. PAXIL [Suspect]
     Indication: DEPRESSION
     Route: 048
  3. VALIUM [Concomitant]
     Dosage: 5MG TWICE PER DAY
     Route: 048
  4. ZYPREXA [Concomitant]
     Dosage: 10MG AT NIGHT
     Route: 048
  5. ZYPREXA [Concomitant]
     Dosage: 2.5MG IN THE MORNING
     Route: 048

REACTIONS (2)
  - CONVULSION [None]
  - DRUG INEFFECTIVE [None]
